FAERS Safety Report 6206002-7 (Version None)
Quarter: 2009Q2

REPORT INFORMATION
  Report Type: 
  Country: None (occurrence: None)
  Receive Date: 20090527
  Receipt Date: 20090527
  Transmission Date: 20091009
  Serious: Yes (Death)
  Sender: FDA-Public Use
  Company Number: None

PATIENT
  Sex: Male
  Weight: 64 kg

DRUGS (2)
  1. CISPLATIN [Suspect]
     Dosage: 240 MG
     Dates: end: 20090415
  2. TAXOTERE [Suspect]
     Dosage: 240 MG
     Dates: end: 20090415

REACTIONS (14)
  - ASTHENIA [None]
  - EXCORIATION [None]
  - HAEMORRHAGE [None]
  - IMPAIRED HEALING [None]
  - JOINT RANGE OF MOTION DECREASED [None]
  - LARYNGEAL CANCER [None]
  - MALIGNANT NEOPLASM PROGRESSION [None]
  - MUSCLE SWELLING [None]
  - NAUSEA [None]
  - OEDEMA PERIPHERAL [None]
  - PROCEDURAL SITE REACTION [None]
  - REFUSAL OF TREATMENT BY PATIENT [None]
  - TREATMENT NONCOMPLIANCE [None]
  - WEIGHT INCREASED [None]
